FAERS Safety Report 6307842-6 (Version None)
Quarter: 2009Q3

REPORT INFORMATION
  Report Type: 
  Country: None (occurrence: None)
  Receive Date: 20090810
  Receipt Date: 20090803
  Transmission Date: 20100115
  Serious: Yes (Hospitalization, Other)
  Sender: FDA-Public Use
  Company Number: CHPA2009US16337

PATIENT
  Age: 60 Year
  Sex: Female
  Weight: 74.4 kg

DRUGS (1)
  1. VOLTAREN [Suspect]
     Dosage: QID, TOPICAL
     Route: 061
     Dates: start: 20090701

REACTIONS (4)
  - DIZZINESS [None]
  - LOSS OF CONSCIOUSNESS [None]
  - NAUSEA [None]
  - PALLOR [None]
